FAERS Safety Report 8876217 (Version 2)
Quarter: 2013Q2

REPORT INFORMATION
  Report Type: Spontaneous
  Country: RS (occurrence: RS)
  Receive Date: 20121023
  Receipt Date: 20130424
  Transmission Date: 20140414
  Serious: Yes (Death, Other)
  Sender: FDA-Public Use
  Company Number: PHHY2012RS094036

PATIENT
  Age: 13 Year
  Sex: Female

DRUGS (10)
  1. OXALIPLATIN [Suspect]
     Indication: COLON CANCER
  2. FLUOROURACIL [Concomitant]
     Indication: COLON CANCER
     Dosage: 600 MG/M2, UNK
  3. FLUOROURACIL [Concomitant]
     Dosage: 400 UNK, ON DAY 1
  4. FLUOROURACIL [Concomitant]
     Dosage: 400 UNK, ON DAY 2 AND 3
  5. FOLINIC ACID [Concomitant]
     Indication: COLON CANCER
     Dosage: 200 MG/M2, UNK
  6. FOLINIC ACID [Concomitant]
     Dosage: 400 UNK, UNK
  7. IRINOTECAN [Concomitant]
     Dosage: 180 MG/M2, UNK
  8. CETUXIMAB [Concomitant]
     Dosage: 500 MG/M2, UNK
  9. BEVACIZUMAB [Concomitant]
     Dosage: 7.5 MG/M2, UNK
  10. CAPECITABINE [Concomitant]
     Dosage: 1250 MG/M2, UNK

REACTIONS (7)
  - Malignant neoplasm progression [Fatal]
  - Bone marrow failure [Unknown]
  - Paronychia [Unknown]
  - Neutropenia [Unknown]
  - Anaemia [Unknown]
  - Nausea [Unknown]
  - Paraesthesia [Unknown]
